FAERS Safety Report 9033103 (Version 1)
Quarter: 2013Q1

REPORT INFORMATION
  Report Type: Spontaneous
  Country: US (occurrence: US)
  Receive Date: 20130128
  Receipt Date: 20130128
  Transmission Date: 20140127
  Serious: Yes (Hospitalization)
  Sender: FDA-Public Use
  Company Number: US-PFIZER INC-2013030461

PATIENT
  Sex: Female

DRUGS (2)
  1. EPIPEN [Suspect]
     Indication: HYPERSENSITIVITY
     Dosage: UNK
  2. BENADRYL [Suspect]
     Indication: HYPERSENSITIVITY
     Dosage: UNK

REACTIONS (5)
  - Dyspnoea [Unknown]
  - Chest pain [Unknown]
  - Neck pain [Unknown]
  - Drug ineffective [Unknown]
  - Vomiting [Unknown]
